FAERS Safety Report 14081946 (Version 1)
Quarter: 2017Q4

REPORT INFORMATION
  Report Type: Spontaneous
  Country: US (occurrence: US)
  Receive Date: 20171012
  Receipt Date: 20171012
  Transmission Date: 20180321
  Serious: No
  Sender: FDA-Public Use
  Company Number: US-MYLANLABS-2017M1049282

PATIENT
  Age: 66 Year
  Sex: Male

DRUGS (2)
  1. CLONAZEPAM MYLAN [Suspect]
     Active Substance: CLONAZEPAM
     Indication: PRODUCT USED FOR UNKNOWN INDICATION
     Dosage: 3 MG, QD
     Dates: start: 20170710
  2. CLONAZEPAM MYLAN [Suspect]
     Active Substance: CLONAZEPAM
     Dosage: 2 MG, QD
     Dates: start: 20170710

REACTIONS (2)
  - Chest discomfort [Unknown]
  - Adverse reaction [Unknown]
